FAERS Safety Report 16422199 (Version 11)
Quarter: 2021Q2

REPORT INFORMATION
  Report Type: Report from Study
  Country: US (occurrence: US)
  Receive Date: 20190612
  Receipt Date: 20210514
  Transmission Date: 20210716
  Serious: Yes (Hospitalization)
  Sender: FDA-Public Use
  Company Number: PHEH2019US024411

PATIENT
  Sex: Male
  Weight: 85.71 kg

DRUGS (14)
  1. REMODULIN [Concomitant]
     Active Substance: TREPROSTINIL
     Indication: PRODUCT USED FOR UNKNOWN INDICATION
     Dosage: 46 NG/KG/MIN
     Route: 065
  2. TREPROSTINIL. [Suspect]
     Active Substance: TREPROSTINIL
     Dosage: 44 NG/KG/MIN, CONTINUOUS
     Route: 042
  3. TREPROSTINIL. [Suspect]
     Active Substance: TREPROSTINIL
     Dosage: 74 NG/KG/MIN (CONTINUOUS)
     Route: 065
  4. OXYCODONE [Concomitant]
     Active Substance: OXYCODONE
     Indication: PRODUCT USED FOR UNKNOWN INDICATION
     Dosage: 50 MG, FOR 5 DAYS
     Route: 065
  5. TREPROSTINIL. [Suspect]
     Active Substance: TREPROSTINIL
     Dosage: 62 NG/KG/MIN (CONTINUOUS)
     Route: 042
  6. TREPROSTINIL. [Suspect]
     Active Substance: TREPROSTINIL
     Dosage: UNK
     Route: 065
  7. TREPROSTINIL. [Suspect]
     Active Substance: TREPROSTINIL
     Dosage: 78 NG/KG/MIN (CONTINUOUS)
     Route: 042
  8. ADVIL [Concomitant]
     Active Substance: IBUPROFEN
     Indication: PRODUCT USED FOR UNKNOWN INDICATION
     Dosage: UNK
     Route: 065
  9. TREPROSTINIL. [Suspect]
     Active Substance: TREPROSTINIL
     Dosage: 46 NG/KG/MIN, CONTINUOUS
     Route: 042
  10. TREPROSTINIL. [Suspect]
     Active Substance: TREPROSTINIL
     Dosage: UNK
     Route: 065
  11. OPSUMIT [Concomitant]
     Active Substance: MACITENTAN
     Indication: PRODUCT USED FOR UNKNOWN INDICATION
     Dosage: UNK
     Route: 065
  12. TYLENOL [Concomitant]
     Active Substance: ACETAMINOPHEN
     Indication: PRODUCT USED FOR UNKNOWN INDICATION
     Dosage: UNK
     Route: 065
  13. TREPROSTINIL. [Suspect]
     Active Substance: TREPROSTINIL
     Indication: PULMONARY ARTERIAL HYPERTENSION
     Dosage: 22 NG/KG/MIN (5 MG/ML), CONTINUOUS
     Route: 042
     Dates: start: 20190610
  14. TREPROSTINIL. [Suspect]
     Active Substance: TREPROSTINIL
     Dosage: 56 NG/KG/MIN, CONTINUOUS
     Route: 042

REACTIONS (11)
  - Asthenia [Unknown]
  - Headache [Recovering/Resolving]
  - Pain in extremity [Not Recovered/Not Resolved]
  - Pain in jaw [Unknown]
  - Hypersensitivity [Unknown]
  - Diarrhoea [Unknown]
  - Musculoskeletal pain [Unknown]
  - Nausea [Recovering/Resolving]
  - Flushing [Unknown]
  - Dyspnoea [Unknown]
  - Dizziness [Unknown]
